FAERS Safety Report 16535972 (Version 1)
Quarter: 2019Q3

REPORT INFORMATION
  Report Type: Report from Study
  Country: None (occurrence: US)
  Receive Date: 20190705
  Receipt Date: 20190705
  Transmission Date: 20191004
  Serious: Yes (Other)
  Sender: FDA-Public Use
  Company Number: US-ABBVIE-19K-163-2658853-00

PATIENT
  Age: 58 Year
  Sex: Female

DRUGS (2)
  1. VENCLEXTA [Suspect]
     Active Substance: VENETOCLAX
     Indication: CHRONIC LYMPHOCYTIC LEUKAEMIA
     Route: 048
     Dates: start: 20180204
  2. IMBRUVICA [Suspect]
     Active Substance: IBRUTINIB
     Indication: CHRONIC LYMPHOCYTIC LEUKAEMIA
     Route: 048
     Dates: start: 201901

REACTIONS (15)
  - Muscle spasms [Unknown]
  - Sinusitis [Unknown]
  - Diarrhoea [Recovering/Resolving]
  - Petechiae [Unknown]
  - Myalgia [Unknown]
  - Eye haemorrhage [Recovering/Resolving]
  - Ocular vascular disorder [Recovering/Resolving]
  - Skin texture abnormal [Unknown]
  - Retinal aneurysm [Recovering/Resolving]
  - Adverse drug reaction [Unknown]
  - Fatigue [Unknown]
  - Blood disorder [Recovering/Resolving]
  - Epistaxis [Unknown]
  - Gingival bleeding [Unknown]
  - Contusion [Unknown]

NARRATIVE: CASE EVENT DATE: 201901
